FAERS Safety Report 20562571 (Version 1)
Quarter: 2022Q1

REPORT INFORMATION
  Report Type: Spontaneous
  Country: US (occurrence: None)
  Receive Date: 20220307
  Receipt Date: 20220307
  Transmission Date: 20220423
  Serious: Yes (Other)
  Sender: FDA-Public Use
  Company Number: None

PATIENT
  Age: 69 Year
  Sex: Female
  Weight: 50.4 kg

DRUGS (1)
  1. TABRECTA [Suspect]
     Active Substance: CAPMATINIB

REACTIONS (4)
  - Dyspnoea [None]
  - Therapy interrupted [None]
  - Interstitial lung disease [None]
  - Disease progression [None]
